FAERS Safety Report 7482997-9 (Version None)
Quarter: 2011Q2

REPORT INFORMATION
  Report Type: 
  Country: None (occurrence: None)
  Receive Date: 20110516
  Receipt Date: 20110414
  Transmission Date: 20111010
  Serious: No
  Sender: FDA-Public Use
  Company Number: US-BAYER-2011-033499

PATIENT
  Age: 79 Year
  Sex: Female
  Weight: 93 kg

DRUGS (2)
  1. ATENOLOL [Concomitant]
  2. ALEVE (CAPLET) [Suspect]
     Indication: PAIN
     Dosage: 440 MG, BID
     Route: 048
     Dates: start: 20110407

REACTIONS (1)
  - PAIN [None]
